FAERS Safety Report 8534310-3 (Version None)
Quarter: 2012Q3

REPORT INFORMATION
  Report Type: 
  Country: None (occurrence: None)
  Receive Date: 20120724
  Receipt Date: 20120716
  Transmission Date: 20120928
  Serious: Yes (Disabling, Other)
  Sender: FDA-Public Use
  Company Number: GB-ABBOTT-12P-167-0928170-00

PATIENT
  Sex: Female
  Weight: 57.8 kg

DRUGS (21)
  1. DIPROBASE [Concomitant]
     Indication: PRODUCT USED FOR UNKNOWN INDICATION
     Dosage: APPLY AS NEEDED
     Dates: start: 20120516
  2. HYDROMOL [Concomitant]
     Indication: PRODUCT USED FOR UNKNOWN INDICATION
     Dates: start: 20120517
  3. ISPAGHULA HUSK [Concomitant]
     Indication: DIVERTICULUM
     Dates: start: 20011220
  4. CALCEOS [Concomitant]
     Indication: OSTEOPOROSIS
     Dates: start: 20110725
  5. HUMIRA [Suspect]
     Indication: PSORIASIS
     Route: 058
     Dates: start: 20111208, end: 20120405
  6. UNKNOWN MEDICATION [Concomitant]
     Indication: PRODUCT USED FOR UNKNOWN INDICATION
     Dates: start: 20101101
  7. DIPROSALIC [Concomitant]
     Indication: PRODUCT USED FOR UNKNOWN INDICATION
     Dosage: APPLY EACH NIGHT WHEN REQUIRED
     Dates: start: 20120113
  8. TACALCITOL [Concomitant]
     Indication: PRODUCT USED FOR UNKNOWN INDICATION
     Dosage: APPLY EVERY DAY
     Dates: start: 20120113
  9. DIPROSALIC [Concomitant]
     Dosage: APPLY AS DIRECTED
     Dates: start: 20120627
  10. AVEENO [Concomitant]
     Indication: PUSTULAR PSORIASIS
  11. ALENDRONATE SODIUM [Concomitant]
     Indication: OSTEOPOROSIS
     Dates: start: 20110725
  12. SIMVASTATIN [Concomitant]
     Indication: CARDIAC DISORDER
     Dates: start: 20090311
  13. HYDROMOL [Concomitant]
     Dosage: USE AS DIRECTED
     Dates: start: 20120627
  14. MOMETASONE FUROATE [Concomitant]
     Indication: PRODUCT USED FOR UNKNOWN INDICATION
     Dosage: APPLY EACH NIGHT
     Dates: start: 20120312
  15. SIMVASTATIN [Concomitant]
     Indication: PROPHYLAXIS
  16. FLUOXETINE HCL [Concomitant]
     Indication: DEPRESSION
     Dates: start: 20100326
  17. RAMIPRIL [Concomitant]
     Indication: PROTEINURIA
     Dates: start: 20120418
  18. OLIVE OIL [Concomitant]
     Indication: PRODUCT USED FOR UNKNOWN INDICATION
     Dosage: WARM TO ROOM TEMP. BEFORE USE.
     Dates: start: 20120627
  19. ALPHOSYL [Concomitant]
     Indication: PRODUCT USED FOR UNKNOWN INDICATION
     Dates: start: 20101118
  20. AVEENO [Concomitant]
     Indication: PSORIASIS
     Dosage: USE AS DIRECTED
     Dates: start: 20101208
  21. DOVONEX [Concomitant]
     Indication: PRODUCT USED FOR UNKNOWN INDICATION

REACTIONS (10)
  - STRESS [None]
  - PRURITUS [None]
  - ANXIETY [None]
  - GENERAL PHYSICAL HEALTH DETERIORATION [None]
  - FOCAL SEGMENTAL GLOMERULOSCLEROSIS [None]
  - SKIN EXFOLIATION [None]
  - PSORIASIS [None]
  - RASH MACULAR [None]
  - PAIN [None]
  - DRUG INEFFECTIVE [None]
